FAERS Safety Report 11121143 (Version 1)
Quarter: 2015Q2

REPORT INFORMATION
  Report Type: Spontaneous
  Country: US (occurrence: None)
  Receive Date: 20150518
  Receipt Date: 20150518
  Transmission Date: 20150821
  Serious: Yes (Hospitalization)
  Sender: FDA-Public Use
  Company Number: None

PATIENT
  Age: 65 Year
  Sex: Female
  Weight: 62.14 kg

DRUGS (1)
  1. REMICADE [Suspect]
     Active Substance: INFLIXIMAB
     Indication: RHEUMATOID ARTHRITIS
     Dosage: 200MG, EVERY 8 WEEKS
     Route: 042
     Dates: start: 20140926, end: 20150508

REACTIONS (5)
  - Chest discomfort [None]
  - Dyspnoea [None]
  - Rash [None]
  - Hypertension [None]
  - Infusion related reaction [None]

NARRATIVE: CASE EVENT DATE: 20150508
